FAERS Safety Report 20162478 (Version 2)
Quarter: 2022Q2

REPORT INFORMATION
  Report Type: Spontaneous
  Country: US (occurrence: US)
  Receive Date: 20211208
  Receipt Date: 20220610
  Transmission Date: 20220721
  Serious: No
  Sender: FDA-Public Use
  Company Number: US-GILEAD-2021-0557404

PATIENT
  Sex: Male
  Weight: 78.912 kg

DRUGS (11)
  1. TRUVADA [Suspect]
     Active Substance: EMTRICITABINE\TENOFOVIR DISOPROXIL FUMARATE
     Indication: Prophylaxis against HIV infection
     Dosage: UNK
     Route: 048
     Dates: start: 2018, end: 202203
  2. IBUPROFEN [Concomitant]
     Active Substance: IBUPROFEN
  3. GABAPENTIN [Concomitant]
     Active Substance: GABAPENTIN
  4. PANTOPRAZOLE [Concomitant]
     Active Substance: PANTOPRAZOLE
  5. DIOVAN [Concomitant]
     Active Substance: VALSARTAN
  6. METOPROLOL [Concomitant]
     Active Substance: METOPROLOL
  7. QUETIAPINE [Concomitant]
     Active Substance: QUETIAPINE
  8. MORPHINE [Concomitant]
     Active Substance: MORPHINE
  9. HYDROCODONE [Concomitant]
     Active Substance: HYDROCODONE
  10. LAMOTRIGINE [Concomitant]
     Active Substance: LAMOTRIGINE
  11. SPIRIVA [TIOTROPIUM BROMIDE] [Concomitant]

REACTIONS (7)
  - Bone demineralisation [Unknown]
  - Bone density decreased [Not Recovered/Not Resolved]
  - Pain [Not Recovered/Not Resolved]
  - Emotional distress [Not Recovered/Not Resolved]
  - Anxiety [Not Recovered/Not Resolved]
  - Anhedonia [Not Recovered/Not Resolved]
  - Gait disturbance [Not Recovered/Not Resolved]

NARRATIVE: CASE EVENT DATE: 20190101
